FAERS Safety Report 5484756-5 (Version None)
Quarter: 2007Q4

REPORT INFORMATION
  Report Type: 
  Country: None (occurrence: None)
  Receive Date: 20071010
  Receipt Date: 20071005
  Transmission Date: 20080405
  Serious: Yes (Hospitalization)
  Sender: FDA-Public Use
  Company Number: GRT 2007-12880

PATIENT
  Age: 67 Year
  Sex: Female
  Weight: 72 kg

DRUGS (14)
  1. LIDOCAINE [Suspect]
     Indication: POST HERPETIC NEURALGIA
     Dosage: 2 PATCHES A DAY
     Dates: start: 20070702, end: 20070712
  2. PARACETAMOL [Concomitant]
  3. ENALAPRIL MALEATE [Concomitant]
  4. TORSEMIDE [Concomitant]
  5. JUTALEX [Concomitant]
  6. ASS 100 (1-0-0) [Concomitant]
  7. DELIX 5 (1-0-0) [Concomitant]
  8. ESIDRIX 25 (1-0-0) [Concomitant]
  9. LYRICA 75 (2-0-2) [Concomitant]
  10. TILIDIN (3 X 10) [Concomitant]
  11. TOREM 5 (1-0-0) [Concomitant]
  12. GABAPENTIN [Concomitant]
  13. IBUPROFEN [Concomitant]
  14. ARCOXIA [Concomitant]

REACTIONS (10)
  - APRAXIA [None]
  - DISORIENTATION [None]
  - ENCEPHALITIS [None]
  - HEADACHE [None]
  - MENINGITIS [None]
  - MENTAL DISORDER DUE TO A GENERAL MEDICAL CONDITION [None]
  - OVERDOSE [None]
  - PSYCHOMOTOR SKILLS IMPAIRED [None]
  - RESTLESSNESS [None]
  - SPEECH DISORDER [None]
